FAERS Safety Report 25394651 (Version 1)
Quarter: 2025Q2

REPORT INFORMATION
  Report Type: Report from Study
  Country: JP (occurrence: JP)
  Receive Date: 20250604
  Receipt Date: 20250604
  Transmission Date: 20250717
  Serious: Yes (Other)
  Sender: TAKEDA
  Company Number: JP-SHIRE-JP201818999

PATIENT
  Age: 13 Year
  Sex: Male
  Weight: 63 kg

DRUGS (3)
  1. GUANFACINE HYDROCHLORIDE [Suspect]
     Active Substance: GUANFACINE HYDROCHLORIDE
     Indication: Attention deficit hyperactivity disorder
     Dosage: 1 MILLIGRAM, QD
     Dates: start: 20170902, end: 20170906
  2. GUANFACINE HYDROCHLORIDE [Suspect]
     Active Substance: GUANFACINE HYDROCHLORIDE
     Dosage: 0.5 MILLIGRAM, QD
     Dates: start: 20171026, end: 20171110
  3. CONCERTA [Concomitant]
     Active Substance: METHYLPHENIDATE HYDROCHLORIDE
     Indication: Attention deficit hyperactivity disorder
     Dosage: 54 MILLIGRAM, QD

REACTIONS (4)
  - Bradycardia [Unknown]
  - Electrocardiogram QT prolonged [Unknown]
  - Somnolence [Recovered/Resolved]
  - Intentional product use issue [Unknown]

NARRATIVE: CASE EVENT DATE: 20170903
